FAERS Safety Report 24018061 (Version 2)
Quarter: 2024Q3

REPORT INFORMATION
  Report Type: Spontaneous
  Country: US (occurrence: US)
  Receive Date: 20240627
  Receipt Date: 20240828
  Transmission Date: 20241017
  Serious: Yes (Hospitalization, Other)
  Sender: BOEHRINGER INGELHEIM
  Company Number: US-BoehringerIngelheim-2024-BI-036395

PATIENT
  Age: 72 Year
  Sex: Female
  Weight: 81.6 kg

DRUGS (2)
  1. JARDIANCE [Suspect]
     Active Substance: EMPAGLIFLOZIN
     Indication: Type 2 diabetes mellitus
     Dates: start: 20210106, end: 20210227
  2. PREDNISONE [Suspect]
     Active Substance: PREDNISONE
     Indication: Myalgia

REACTIONS (4)
  - Fournier^s gangrene [Recovered/Resolved]
  - Fungal infection [Recovered/Resolved]
  - Blood glucose increased [Not Recovered/Not Resolved]
  - Immunosuppression [Recovered/Resolved]

NARRATIVE: CASE EVENT DATE: 20230101
